FAERS Safety Report 14712750 (Version 9)
Quarter: 2021Q2

REPORT INFORMATION
  Report Type: Report from Study
  Country: CN (occurrence: CN)
  Receive Date: 20180404
  Receipt Date: 20210521
  Transmission Date: 20210716
  Serious: Yes (Hospitalization)
  Sender: FDA-Public Use
  Company Number: CN-ROCHE-2095785

PATIENT
  Age: 54 Year
  Sex: Female
  Weight: 43 kg

DRUGS (56)
  1. DIPHENHYDRAMINE HYDROCHLORIDE. [Concomitant]
     Active Substance: DIPHENHYDRAMINE HYDROCHLORIDE
     Dosage: PREVENT ALLERGIES
     Dates: start: 20180301, end: 20180301
  2. DIPHENHYDRAMINE HYDROCHLORIDE. [Concomitant]
     Active Substance: DIPHENHYDRAMINE HYDROCHLORIDE
     Dosage: PREVENT ALLERGIES
     Dates: start: 20180301, end: 20180301
  3. POTASSIUM CHLORIDE. [Concomitant]
     Active Substance: POTASSIUM CHLORIDE
     Dates: start: 20180327, end: 20180327
  4. PIPERACILLIN. [Concomitant]
     Active Substance: PIPERACILLIN SODIUM
     Dosage: ANTI?INFECTION
     Dates: start: 20180318, end: 20180319
  5. TROPISETRON HYDROCHLORIDE [Concomitant]
     Active Substance: TROPISETRON HYDROCHLORIDE
     Indication: VOMITING
     Dates: start: 20180228, end: 20180228
  6. DEXTRAN [Concomitant]
     Active Substance: DEXTRAN
     Dates: start: 20180205, end: 20180215
  7. PIPERACILLIN SODIUM;TAZOBACTAM SODIUM [Concomitant]
     Active Substance: PIPERACILLIN SODIUM\TAZOBACTAM SODIUM
     Dates: start: 20180318, end: 20180319
  8. CAFFEIC ACID [Concomitant]
     Active Substance: CAFFEIC ACID
     Dates: start: 20180227, end: 20180304
  9. DEXAMETHASONE SODIUM PHOSPHATE. [Concomitant]
     Active Substance: DEXAMETHASONE SODIUM PHOSPHATE
     Dosage: PREVENT ALLERGIES
     Route: 030
     Dates: start: 20180301, end: 20180301
  10. OMEPRAZOLE SODIUM [Concomitant]
     Active Substance: OMEPRAZOLE SODIUM
     Dosage: PROTECT THE STOMACH
     Dates: start: 20180228, end: 20180228
  11. GLUCOSE [Concomitant]
     Active Substance: DEXTROSE
     Dates: start: 20180317, end: 20180325
  12. CLOSTRIDIUM BUTYRICUM [Concomitant]
     Active Substance: CLOSTRIDIUM BUTYRICUM SPORES STRAIN M-55
     Dosage: REGULATES GASTROINTESTINAL FUNCTION
     Dates: start: 20180327, end: 20180403
  13. VITAMIN B6 [Concomitant]
     Active Substance: PYRIDOXINE HYDROCHLORIDE
     Dates: start: 20180301, end: 20180301
  14. PACLITAXEL. [Suspect]
     Active Substance: PACLITAXEL
     Indication: OVARIAN CANCER
     Dosage: DATE OF MOST RECENT DOSE OF PACLITAXEL 240 MG PRIOR TO SAE ONSET 01/MAR/2018
     Route: 042
     Dates: start: 20180207
  15. DIPHENHYDRAMINE HYDROCHLORIDE. [Concomitant]
     Active Substance: DIPHENHYDRAMINE HYDROCHLORIDE
     Dosage: PREVENT ALLERGIES
     Dates: start: 20180228, end: 20180228
  16. HEPARIN SODIUM. [Concomitant]
     Active Substance: HEPARIN SODIUM
     Dates: start: 20180302, end: 20180302
  17. OMEPRAZOLE SODIUM [Concomitant]
     Active Substance: OMEPRAZOLE SODIUM
     Dosage: PROTECT THE STOMACH
     Dates: start: 20180302, end: 20180302
  18. OMEPRAZOLE SODIUM [Concomitant]
     Active Substance: OMEPRAZOLE SODIUM
     Dates: start: 20180327, end: 20180327
  19. VITAMIN C [Concomitant]
     Active Substance: ASCORBIC ACID
     Dosage: VITAMIN SUPPLEMENTATION
     Dates: start: 20180317, end: 20180325
  20. VITAMIN C [Concomitant]
     Active Substance: ASCORBIC ACID
     Dates: start: 20180327, end: 20180421
  21. VITAMIN C [Concomitant]
     Active Substance: ASCORBIC ACID
     Dates: start: 20180301, end: 20180301
  22. GLUCOSE [Concomitant]
     Active Substance: DEXTROSE
     Dates: start: 20180327, end: 20180327
  23. TROPISETRON HYDROCHLORIDE [Concomitant]
     Active Substance: TROPISETRON HYDROCHLORIDE
     Dates: start: 20180301, end: 20180301
  24. BEVACIZUMAB. [Suspect]
     Active Substance: BEVACIZUMAB
     Indication: OVARIAN CANCER
     Dosage: DATE OF THE MOST DOSE 690 MG OF BEVACIZUMAB PRIOR TO SAE ONSET ON 01/MAR/2018
     Route: 042
     Dates: start: 20180301
  25. CAFFEIC ACID [Concomitant]
     Active Substance: CAFFEIC ACID
     Dates: start: 20180302, end: 20180302
  26. DEXAMETHASONE SODIUM PHOSPHATE. [Concomitant]
     Active Substance: DEXAMETHASONE SODIUM PHOSPHATE
     Indication: HYPERSENSITIVITY
     Route: 042
     Dates: start: 20180301, end: 20180301
  27. GLUCOSE [Concomitant]
     Active Substance: DEXTROSE
     Dates: start: 20180317, end: 20180325
  28. POTASSIUM CHLORIDE. [Concomitant]
     Active Substance: POTASSIUM CHLORIDE
     Dosage: SUPPLEMENTARY ELECTROLYTE
     Dates: start: 20180317, end: 20180325
  29. CIMETIDINE [Concomitant]
     Active Substance: CIMETIDINE
     Dosage: PROTECT THE STOMACH
     Dates: start: 20180228, end: 20180228
  30. VITAMIN B6 [Concomitant]
     Active Substance: PYRIDOXINE HYDROCHLORIDE
     Dates: start: 20180228, end: 20180228
  31. PROMETHAZINE HYDROCHLORIDE. [Concomitant]
     Active Substance: PROMETHAZINE HYDROCHLORIDE
     Dosage: PREVENT ALLERGIES
     Dates: start: 20180301, end: 20180301
  32. DEXTRAN [Concomitant]
     Active Substance: DEXTRAN
     Dosage: DISPERSION TABLETS, ENRICH THE BLOOD
     Dates: start: 20180211
  33. COENZYME Q10 [Concomitant]
     Active Substance: DIETARY SUPPLEMENT\UBIDECARENONE
     Dosage: COENZYME Q10 SODIUM CHLORIDE INJECTION
     Dates: start: 20180228, end: 20180228
  34. CIMETIDINE [Concomitant]
     Active Substance: CIMETIDINE
     Dates: start: 20180301, end: 20180301
  35. LIDOCAINE HYDROCHLORIDE. [Concomitant]
     Active Substance: LIDOCAINE HYDROCHLORIDE
     Indication: ANAESTHESIA
     Route: 061
     Dates: start: 20180228, end: 20180228
  36. DEXAMETHASONE ACETATE [Concomitant]
     Active Substance: DEXAMETHASONE ACETATE
     Dosage: PREVENT ALLERGIES
     Dates: start: 20180228, end: 20180301
  37. ATEZOLIZUMAB. [Suspect]
     Active Substance: ATEZOLIZUMAB
     Indication: OVARIAN CANCER
     Dosage: DATE OF MOST RECENT DOSE OF ATEZOLIZUMAB PRIOR TO SAE ONSET: 01/MAR/2018
     Route: 042
     Dates: start: 20180207
  38. POTASSIUM CHLORIDE. [Concomitant]
     Active Substance: POTASSIUM CHLORIDE
     Dosage: SUPPLEMENTARY ELECTROLYTE
     Dates: start: 20180228, end: 20180228
  39. POTASSIUM CHLORIDE. [Concomitant]
     Active Substance: POTASSIUM CHLORIDE
     Dates: start: 20180327, end: 20180421
  40. POTASSIUM CHLORIDE. [Concomitant]
     Active Substance: POTASSIUM CHLORIDE
     Dates: start: 20180301, end: 20180301
  41. METOCLOPRAMIDE DIHYDROCHLORIDE [Concomitant]
     Indication: VOMITING
     Dosage: STOP VOMITING
     Dates: start: 20180410, end: 20180410
  42. METOCLOPRAMIDE DIHYDROCHLORIDE [Concomitant]
     Dates: start: 20180410, end: 20180412
  43. DEXAMETHASONE. [Concomitant]
     Active Substance: DEXAMETHASONE
     Dosage: PREVENT ALLERGIES
     Route: 042
     Dates: start: 20180410, end: 20180410
  44. INSULIN INJECTION [Concomitant]
     Active Substance: INSULIN NOS
     Indication: BLOOD GLUCOSE DECREASED
     Dates: start: 20180317, end: 20180325
  45. CARBOPLATIN. [Suspect]
     Active Substance: CARBOPLATIN
     Indication: OVARIAN CANCER
     Dosage: 6 MG/ML*MIN AUC. 510 MG MOST RECENT DOSE
     Route: 042
     Dates: start: 20180207
  46. DIPHENHYDRAMINE HYDROCHLORIDE. [Concomitant]
     Active Substance: DIPHENHYDRAMINE HYDROCHLORIDE
     Dates: start: 20180410, end: 20180410
  47. VITAMIN C [Concomitant]
     Active Substance: ASCORBIC ACID
     Dates: start: 20180327, end: 20180327
  48. CIMETIDINE [Concomitant]
     Active Substance: CIMETIDINE
     Dosage: PROTECT THE STOMACH
     Dates: start: 20180410, end: 20180410
  49. DEXAMETHASONE. [Concomitant]
     Active Substance: DEXAMETHASONE
     Route: 048
     Dates: start: 20180228, end: 20180301
  50. POVIDONE?IODINE. [Concomitant]
     Active Substance: POVIDONE-IODINE
     Dosage: ASEPTIC
     Dates: start: 20180209
  51. MUCOPOLYSACCHARIDE POLYSULFATE [Concomitant]
     Dates: start: 20180228
  52. OMEPRAZOLE SODIUM [Concomitant]
     Active Substance: OMEPRAZOLE SODIUM
     Dates: start: 20180317, end: 20180325
  53. OMEPRAZOLE SODIUM [Concomitant]
     Active Substance: OMEPRAZOLE SODIUM
     Dates: start: 20180329, end: 20180329
  54. VITAMIN C [Concomitant]
     Active Substance: ASCORBIC ACID
     Dates: start: 20180228, end: 20180228
  55. GLUCOSE [Concomitant]
     Active Substance: DEXTROSE
     Dates: start: 20180228, end: 20180228
  56. VITAMIN B6 [Concomitant]
     Active Substance: PYRIDOXINE HYDROCHLORIDE
     Dosage: VITAMIN SUPPLEMENTATION
     Dates: start: 20180302, end: 20180302

REACTIONS (1)
  - Intestinal obstruction [Recovered/Resolved]

NARRATIVE: CASE EVENT DATE: 20180317
